FAERS Safety Report 5372136-2 (Version None)
Quarter: 2007Q2

REPORT INFORMATION
  Report Type: 
  Country: None (occurrence: None)
  Receive Date: 20070615
  Receipt Date: 20061213
  Transmission Date: 20071010
  Serious: Yes (Other)
  Sender: FDA-Public Use
  Company Number: 200620052US

PATIENT
  Age: 82 Year
  Sex: Male
  Weight: 81.8 kg

DRUGS (5)
  1. LANTUS [Suspect]
     Indication: DIABETES MELLITUS
     Dosage: 32 U QPM
     Dates: start: 20061201
  2. DILANTIN [Concomitant]
  3. LISINOPRIL [Concomitant]
  4. WARFARIN SODIUM [Concomitant]
  5. ZOCOR [Concomitant]

REACTIONS (4)
  - BLOOD GLUCOSE INCREASED [None]
  - CONFUSIONAL STATE [None]
  - HYPOGLYCAEMIC UNCONSCIOUSNESS [None]
  - VISUAL DISTURBANCE [None]
